FAERS Safety Report 7456299-0 (Version None)
Quarter: 2011Q2

REPORT INFORMATION
  Report Type: 
  Country: None (occurrence: None)
  Receive Date: 20110503
  Receipt Date: 20110426
  Transmission Date: 20111010
  Serious: Yes (Other)
  Sender: FDA-Public Use
  Company Number: JP-SANOFI-AVENTIS-2011SA026161

PATIENT
  Age: 35 Year
  Sex: Female
  Weight: 77.6 kg

DRUGS (9)
  1. METFFORMIN HYDROCHLORIDE [Concomitant]
     Dates: start: 20100106, end: 20110220
  2. OMEPRAZOLE [Concomitant]
     Dates: start: 20101104
  3. LANTUS [Suspect]
     Indication: TYPE 2 DIABETES MELLITUS
     Dosage: DOSE:4 UNIT(S)
     Route: 058
     Dates: start: 20100106, end: 20100120
  4. URSO 250 [Concomitant]
     Dates: start: 20110120
  5. LANTUS [Suspect]
     Dosage: DOSE:8 UNIT(S)
     Route: 058
     Dates: start: 20100525, end: 20100705
  6. LOXONIN [Concomitant]
     Dates: start: 20090525
  7. LANTUS [Suspect]
     Dosage: DOSE:6 UNIT(S)
     Route: 058
     Dates: start: 20100121, end: 20100524
  8. EXENATIDE [Suspect]
     Dates: start: 20100707, end: 20101216
  9. BONALON [Concomitant]
     Dates: start: 20090613

REACTIONS (1)
  - THYROID CANCER [None]
